FAERS Safety Report 11829295 (Version 1)
Quarter: 2015Q4

REPORT INFORMATION
  Report Type: Spontaneous
  Country: US (occurrence: US)
  Receive Date: 20151211
  Receipt Date: 20151211
  Transmission Date: 20160305
  Serious: No
  Sender: FDA-Public Use
  Company Number: US-BAUSCH-BL-2015-012614

PATIENT
  Sex: Female

DRUGS (4)
  1. XENAZINE [Suspect]
     Active Substance: TETRABENAZINE
     Route: 048
     Dates: start: 201504
  2. XENAZINE [Suspect]
     Active Substance: TETRABENAZINE
     Dosage: 2 AND ? TABLETS A DAY
     Route: 048
     Dates: start: 2015
  3. XENAZINE [Suspect]
     Active Substance: TETRABENAZINE
     Indication: HUNTINGTON^S DISEASE
     Route: 048
     Dates: start: 20150316
  4. XENAZINE [Suspect]
     Active Substance: TETRABENAZINE
     Route: 048
     Dates: start: 2015

REACTIONS (5)
  - Fatigue [Recovering/Resolving]
  - Somnolence [Recovering/Resolving]
  - Insomnia [Not Recovered/Not Resolved]
  - Drug administration error [Unknown]
  - Anxiety [Recovering/Resolving]

NARRATIVE: CASE EVENT DATE: 2015
